FAERS Safety Report 7395608-8 (Version None)
Quarter: 2011Q2

REPORT INFORMATION
  Report Type: 
  Country: None (occurrence: None)
  Receive Date: 20110405
  Receipt Date: 20110331
  Transmission Date: 20111010
  Serious: Yes (Other)
  Sender: FDA-Public Use
  Company Number: IT-PFIZER INC-2011072452

PATIENT
  Age: 79 Year
  Sex: Female

DRUGS (7)
  1. TRIATEC [Suspect]
     Indication: HYPERTENSION
     Dosage: 5 MG, DAILY
     Route: 048
     Dates: start: 20090101
  2. ZANEDIP [Concomitant]
     Dosage: 10 MG
     Route: 048
  3. TORVAST [Suspect]
     Dosage: 40 MG, DAILY
     Route: 048
     Dates: start: 20110120
  4. VISTAGAN [Concomitant]
     Dosage: UNK
  5. ANTRA [Suspect]
     Indication: PROPHYLAXIS AGAINST GASTROINTESTINAL ULCER
     Dosage: 20 MG, DAILY
     Route: 048
     Dates: start: 20090101
  6. ASPIRIN [Concomitant]
     Dosage: 1 UNIT DOSE
     Route: 048
  7. REPAGLINIDE [Concomitant]
     Dosage: 0.5 MG, UNK
     Route: 048

REACTIONS (3)
  - MUSCLE SPASMS [None]
  - MYOPATHY TOXIC [None]
  - MYALGIA [None]
